FAERS Safety Report 15363519 (Version 2)
Quarter: 2018Q3

REPORT INFORMATION
  Report Type: Spontaneous
  Country: HR (occurrence: HR)
  Receive Date: 20180907
  Receipt Date: 20180920
  Transmission Date: 20181010
  Serious: Yes (Other)
  Sender: FDA-Public Use
  Company Number: PHHY2018HR087992

PATIENT
  Age: 26 Year
  Sex: Male

DRUGS (6)
  1. KETOPROFEN. [Interacting]
     Active Substance: KETOPROFEN
     Indication: PRODUCT USED FOR UNKNOWN INDICATION
     Route: 065
  2. PANTOPRAZOLE [Suspect]
     Active Substance: PANTOPRAZOLE
     Indication: PRODUCT USED FOR UNKNOWN INDICATION
     Route: 065
  3. METHOTREXATE. [Interacting]
     Active Substance: METHOTREXATE
     Indication: ACUTE LYMPHOCYTIC LEUKAEMIA
     Dosage: 5000 MG/M2, UNK
     Route: 042
  4. METHOTREXATE. [Interacting]
     Active Substance: METHOTREXATE
     Dosage: 5000 MG/M2, UNK(SECOND INFUSION)
     Route: 042
  5. CIPROFLOXACIN. [Interacting]
     Active Substance: CIPROFLOXACIN
     Indication: PRODUCT USED FOR UNKNOWN INDICATION
     Route: 065
  6. PIPERACILLIN AND TAZOBACTAM [Interacting]
     Active Substance: PIPERACILLIN SODIUM\TAZOBACTAM SODIUM
     Indication: PRODUCT USED FOR UNKNOWN INDICATION
     Route: 065

REACTIONS (11)
  - Confusional state [Unknown]
  - Headache [Unknown]
  - Agranulocytosis [Unknown]
  - Vomiting [Unknown]
  - Acute kidney injury [Recovering/Resolving]
  - Posterior reversible encephalopathy syndrome [Unknown]
  - Generalised tonic-clonic seizure [Recovered/Resolved]
  - Drug-induced liver injury [Unknown]
  - Drug interaction [Unknown]
  - Neutropenia [Recovered/Resolved]
  - Nausea [Unknown]
